FAERS Safety Report 6914018-8 (Version None)
Quarter: 2010Q3

REPORT INFORMATION
  Report Type: 
  Country: None (occurrence: None)
  Receive Date: 20100809
  Receipt Date: 20100727
  Transmission Date: 20110219
  Serious: Yes (Other)
  Sender: FDA-Public Use
  Company Number: PHHY2010DE49067

PATIENT
  Sex: Female
  Weight: 57 kg

DRUGS (11)
  1. CGS 20267 T30748+ [Suspect]
     Indication: BREAST CANCER
     Dosage: 2.5 MG, DAILY
     Route: 048
     Dates: start: 20090206
  2. PANTOPRAZOLE [Concomitant]
     Dosage: 1 TABLET DAILY
     Route: 048
     Dates: start: 20100122
  3. LYRICA [Concomitant]
     Dosage: 2 TABLETS DAILY (75 UNIT UNSPECIFIED)
     Route: 048
     Dates: start: 20100122
  4. HCT [Concomitant]
     Dosage: ? TABLET DAILY (25 UNIT UNSPECIFIED)
     Route: 048
     Dates: start: 20100425
  5. BISOPROLOL [Concomitant]
     Dosage: 2 TABLETS DAILY (2.5 UNIT UNSPECIFIED)
     Route: 048
     Dates: start: 20100425
  6. CYMBALTA [Concomitant]
     Dosage: 1 TABLET DAILY (60 UNIT UNSPECIFIED)
     Route: 048
     Dates: start: 20100122
  7. TORSEMIDE [Concomitant]
     Dosage: 1 ? TABLET DAILY (10 UNIT UNSPECIFIED)
     Route: 048
     Dates: start: 20100425
  8. ACETYLSALICYLIC ACID SRT [Concomitant]
     Dosage: 1 TABLET DAILY
     Route: 048
     Dates: start: 20100122
  9. ZYPREXA [Concomitant]
     Dosage: 1 TABLET DAILY (2.5 UNIT UNSPECIFIED)
     Route: 048
     Dates: start: 20100122
  10. DURAGESIC-100 [Concomitant]
     Dosage: UNK
     Route: 062
     Dates: start: 20100122
  11. SEVREDOL [Concomitant]
     Dosage: UNK
     Dates: start: 20100122

REACTIONS (5)
  - ATRIAL FIBRILLATION [None]
  - CORONARY ARTERY DISEASE [None]
  - HYPERTENSIVE HEART DISEASE [None]
  - HYPERTENSIVE NEPHROPATHY [None]
  - TACHYARRHYTHMIA [None]
